FAERS Safety Report 25172778 (Version 3)
Quarter: 2025Q4

REPORT INFORMATION
  Report Type: Report from Study
  Country: CA (occurrence: CA)
  Receive Date: 20250408
  Receipt Date: 20251003
  Transmission Date: 20260118
  Serious: Yes (Other)
  Sender: TAKEDA
  Company Number: CA-TAKEDA-2025TUS033646

PATIENT
  Sex: Female

DRUGS (3)
  1. VEDOLIZUMAB [Suspect]
     Active Substance: VEDOLIZUMAB
     Indication: Colitis ulcerative
     Dosage: 300 MILLIGRAM
  2. MESALAMINE [Concomitant]
     Active Substance: MESALAMINE
     Dosage: 4.8 GRAM, QD
  3. IRON [Concomitant]
     Active Substance: IRON
     Indication: Supplementation therapy
     Dosage: UNK UNK, QD

REACTIONS (4)
  - Colitis ulcerative [Unknown]
  - Haematochezia [Unknown]
  - Drug ineffective [Unknown]
  - Irritable bowel syndrome [Unknown]
